FAERS Safety Report 4530102-0 (Version None)
Quarter: 2004Q4

REPORT INFORMATION
  Report Type: 
  Country: None (occurrence: None)
  Receive Date: 20041214
  Receipt Date: 20041202
  Transmission Date: 20050328
  Serious: Yes (Hospitalization)
  Sender: FDA-Public Use
  Company Number: 2004UW22648

PATIENT
  Age: 78 Year
  Sex: Male
  Weight: 110.6777 kg

DRUGS (3)
  1. CRESTOR [Suspect]
     Indication: HYPERLIPIDAEMIA
     Dosage: 5 MG DAILY PO
     Route: 048
     Dates: start: 20040609, end: 20041025
  2. HYDROCHLOROTHIAZIDE [Concomitant]
  3. NORVASC [Concomitant]

REACTIONS (8)
  - BLOOD CREATINE PHOSPHOKINASE MB INCREASED [None]
  - BUNDLE BRANCH BLOCK BILATERAL [None]
  - DEHYDRATION [None]
  - HYPERTENSIVE HEART DISEASE [None]
  - OEDEMA PERIPHERAL [None]
  - RHABDOMYOLYSIS [None]
  - SEPSIS [None]
  - SINUS TACHYCARDIA [None]
